FAERS Safety Report 16808671 (Version 1)
Quarter: 2019Q3

REPORT INFORMATION
  Report Type: Spontaneous
  Country: FR (occurrence: FR)
  Receive Date: 20190916
  Receipt Date: 20190916
  Transmission Date: 20191005
  Serious: Yes (Hospitalization)
  Sender: FDA-Public Use
  Company Number: FR-SUN PHARMACEUTICAL INDUSTRIES LTD-2019RR-220795

PATIENT
  Age: 70 Year
  Sex: Female

DRUGS (3)
  1. PARACETAMOL [Suspect]
     Active Substance: ACETAMINOPHEN
     Indication: PAIN
     Dosage: ()
     Route: 048
  2. LANSOPRAZOLE. [Suspect]
     Active Substance: LANSOPRAZOLE
     Indication: PRODUCT USED FOR UNKNOWN INDICATION
     Dosage: 30 MILLIGRAM, UNK
     Route: 048
     Dates: start: 20190517, end: 20190721
  3. COLCHICINE OPOCALCIUM 1 MG, COMPRIME [Suspect]
     Active Substance: COLCHICINE
     Indication: PERICARDITIS
     Dosage: 1 MILLIGRAM, DAILY
     Route: 048
     Dates: start: 201905

REACTIONS (1)
  - Hepatocellular injury [Not Recovered/Not Resolved]

NARRATIVE: CASE EVENT DATE: 20190717
